FAERS Safety Report 7065168-X (Version None)
Quarter: 2010Q4

REPORT INFORMATION
  Report Type: 
  Country: None (occurrence: None)
  Receive Date: 20101022
  Receipt Date: 20101022
  Transmission Date: 20110411
  Serious: Yes (Death, Other)
  Sender: FDA-Public Use
  Company Number: None

PATIENT
  Age: 19 Year
  Sex: Female
  Weight: 45.3597 kg

DRUGS (2)
  1. PARTIA - 0.15 MG LEVONORGESTREL AND 30 MCG ETHINYL ESTRADIOL / BARR PH [Suspect]
     Indication: CONTRACEPTION
     Dosage: 0.15 / 30 1 DAILY ORAL
     Route: 048
     Dates: start: 20100105, end: 20100404
  2. PARTIA - 0.15 MG LEVONORGESTREL AND 30 MCG ETHINYL ESTRADIOL / BARR PH [Suspect]
     Indication: METRORRHAGIA
     Dosage: 0.15 / 30 1 DAILY ORAL
     Route: 048
     Dates: start: 20100105, end: 20100404

REACTIONS (2)
  - COMPLETED SUICIDE [None]
  - DEPRESSION [None]
